FAERS Safety Report 7968335-3 (Version None)
Quarter: 2011Q4

REPORT INFORMATION
  Report Type: 
  Country: None (occurrence: None)
  Receive Date: 20111209
  Receipt Date: 20111201
  Transmission Date: 20120403
  Serious: Yes (Other)
  Sender: FDA-Public Use
  Company Number: CA-JNJFOC-20111006746

PATIENT
  Sex: Male

DRUGS (3)
  1. STELARA [Suspect]
     Indication: PSORIASIS
     Route: 058
  2. STELARA [Suspect]
     Route: 058
     Dates: start: 20090101
  3. METHOTREXATE [Suspect]
     Indication: PSORIASIS
     Dates: start: 20110501

REACTIONS (1)
  - COGNITIVE DISORDER [None]
